FAERS Safety Report 9537666 (Version 1)
Quarter: 2013Q3

REPORT INFORMATION
  Report Type: Spontaneous
  Country: DE (occurrence: DE)
  Receive Date: 20130919
  Receipt Date: 20130919
  Transmission Date: 20140515
  Serious: Yes (Hospitalization)
  Sender: FDA-Public Use
  Company Number: DE-ELI_LILLY_AND_COMPANY-DE201309005276

PATIENT
  Age: 48 Year
  Sex: Male

DRUGS (2)
  1. HUMINSULIN NPH [Suspect]
     Indication: TYPE 2 DIABETES MELLITUS
     Route: 058
  2. INSULIN LISPRO [Suspect]
     Indication: TYPE 2 DIABETES MELLITUS
     Route: 058

REACTIONS (1)
  - Glucose-6-phosphate dehydrogenase deficiency [Not Recovered/Not Resolved]
